FAERS Safety Report 5528097-6 (Version None)
Quarter: 2007Q4

REPORT INFORMATION
  Report Type: 
  Country: None (occurrence: None)
  Receive Date: 20071128
  Receipt Date: 20070410
  Transmission Date: 20080405
  Serious: Yes (Hospitalization, Other)
  Sender: FDA-Public Use
  Company Number: US-ASTRAZENECA-2007UW02053

PATIENT
  Age: 45 Year
  Sex: Female
  Weight: 110.5 kg

DRUGS (6)
  1. SEROQUEL [Suspect]
     Indication: BIPOLAR DISORDER
     Dosage: 125-250 MG
     Route: 048
     Dates: start: 19990201, end: 20060201
  2. SEROQUEL [Suspect]
     Indication: POST-TRAUMATIC STRESS DISORDER
     Dosage: 125-250 MG
     Route: 048
     Dates: start: 19990201, end: 20060201
  3. SEROQUEL [Suspect]
     Indication: DEPRESSION
     Dosage: 125-250 MG
     Route: 048
     Dates: start: 19990201, end: 20060201
  4. RISPERDAL [Concomitant]
     Dates: start: 19980101
  5. ZYPREXA/SYMBYAX (OLANZAPINE) [Concomitant]
     Dates: start: 19980101
  6. DEPAKOTE [Concomitant]
     Dates: start: 20010101

REACTIONS (20)
  - ARTHROSCOPY [None]
  - ASTHMA [None]
  - BLOOD CHOLESTEROL INCREASED [None]
  - BLOOD TRIGLYCERIDES INCREASED [None]
  - CARPAL TUNNEL DECOMPRESSION [None]
  - CELLULITIS [None]
  - CELLULITIS ORBITAL [None]
  - CONJUNCTIVITIS [None]
  - CONVULSION [None]
  - DIABETIC NEUROPATHY [None]
  - GASTROOESOPHAGEAL REFLUX DISEASE [None]
  - HOSPITALISATION [None]
  - HYPERTENSION [None]
  - LIPOMA EXCISION [None]
  - OSTEOARTHRITIS [None]
  - PHLEBITIS SUPERFICIAL [None]
  - SHOULDER ARTHROPLASTY [None]
  - SLEEP APNOEA SYNDROME [None]
  - TYPE 1 DIABETES MELLITUS [None]
  - TYPE 2 DIABETES MELLITUS [None]
